FAERS Safety Report 24823527 (Version 1)
Quarter: 2025Q1

REPORT INFORMATION
  Report Type: Spontaneous
  Country: GB (occurrence: GB)
  Receive Date: 20250109
  Receipt Date: 20250109
  Transmission Date: 20250409
  Serious: Yes (Other)
  Sender: ALKEM
  Company Number: GB-ALKEM LABORATORIES LIMITED-GB-ALKEM-2024-04034

PATIENT
  Age: 48 Year
  Sex: Male

DRUGS (12)
  1. METHADONE HYDROCHLORIDE [Suspect]
     Active Substance: METHADONE HYDROCHLORIDE
     Indication: Product used for unknown indication
     Route: 065
  2. MORPHINE SULFATE [Suspect]
     Active Substance: MORPHINE SULFATE
     Indication: Product used for unknown indication
     Route: 065
  3. BENZOYLECGONINE [Suspect]
     Active Substance: BENZOYLECGONINE
     Indication: Product used for unknown indication
     Route: 065
  4. CLONAZEPAM [Suspect]
     Active Substance: CLONAZEPAM
     Indication: Product used for unknown indication
     Route: 065
  5. COCAINE [Suspect]
     Active Substance: COCAINE
     Indication: Product used for unknown indication
     Route: 065
  6. CODEINE [Suspect]
     Active Substance: CODEINE
     Indication: Product used for unknown indication
     Route: 065
  7. 2-ETHYLIDENE-1,5-DIMETHYL-3,3-DIPHENYLPYRROLIDINE [Suspect]
     Active Substance: 2-ETHYLIDENE-1,5-DIMETHYL-3,3-DIPHENYLPYRROLIDINE
     Indication: Product used for unknown indication
     Route: 065
  8. MDMB-4EN-PINACA [Suspect]
     Active Substance: MDMB-4EN-PINACA
     Indication: Product used for unknown indication
     Route: 065
  9. 6-ACETYLMORPHINE [Suspect]
     Active Substance: 6-ACETYLMORPHINE
     Indication: Product used for unknown indication
     Route: 065
  10. N-DESETHYLISOTONITAZENE [Suspect]
     Active Substance: N-DESETHYLISOTONITAZENE
     Indication: Product used for unknown indication
     Route: 065
  11. NOSCAPINE [Suspect]
     Active Substance: NOSCAPINE
     Indication: Product used for unknown indication
     Route: 065
  12. XYLAZINE [Suspect]
     Active Substance: XYLAZINE
     Indication: Product used for unknown indication
     Route: 065

REACTIONS (4)
  - Seizure [Unknown]
  - Overdose [Unknown]
  - Intentional product misuse [Unknown]
  - Toxicity to various agents [Unknown]
